FAERS Safety Report 11430133 (Version 1)
Quarter: 2015Q3

REPORT INFORMATION
  Report Type: Spontaneous
  Country: US (occurrence: US)
  Receive Date: 20150828
  Receipt Date: 20150828
  Transmission Date: 20151125
  Serious: No
  Sender: FDA-Public Use
  Company Number: US-ROCHE-1157261

PATIENT
  Sex: Male
  Weight: 168 kg

DRUGS (3)
  1. PEGASYS [Suspect]
     Active Substance: PEGINTERFERON ALFA-2A
     Indication: CHRONIC HEPATITIS C
     Route: 058
     Dates: start: 20121114
  2. TELAPREVIR [Suspect]
     Active Substance: TELAPREVIR
     Indication: CHRONIC HEPATITIS C
     Route: 065
     Dates: start: 20121114, end: 20130131
  3. COPEGUS [Suspect]
     Active Substance: RIBAVIRIN
     Indication: CHRONIC HEPATITIS C
     Dosage: IN DIVIDED DOSES
     Route: 048
     Dates: start: 20121114

REACTIONS (11)
  - Vomiting [Unknown]
  - Pollakiuria [Unknown]
  - Haemorrhoids [Unknown]
  - Influenza like illness [Unknown]
  - Fatigue [Unknown]
  - Diarrhoea [Unknown]
  - Pruritus [Unknown]
  - Dry skin [Unknown]
  - Nausea [Unknown]
  - Pain [Unknown]
  - Nasal congestion [Unknown]
